FAERS Safety Report 18563322 (Version 1)
Quarter: 2020Q4

REPORT INFORMATION
  Report Type: Spontaneous
  Country: US (occurrence: US)
  Receive Date: 20201201
  Receipt Date: 20201201
  Transmission Date: 20210114
  Serious: Yes (Life-Threatening, Hospitalization, Other)
  Sender: FDA-Public Use
  Company Number: US-DEXPHARM-20201053

PATIENT
  Age: 74 Year
  Sex: Male
  Weight: 75 kg

DRUGS (14)
  1. DONEPEZIL NON DEXCEL PRODUCT [Suspect]
     Active Substance: DONEPEZIL
     Dates: end: 201802
  2. VENLAFAXINE [Suspect]
     Active Substance: VENLAFAXINE HYDROCHLORIDE
     Indication: MIGRAINE PROPHYLAXIS
     Dosage: TWICE A DAY
     Dates: start: 201607, end: 201802
  3. VENLAFAXINE [Suspect]
     Active Substance: VENLAFAXINE HYDROCHLORIDE
     Indication: DEPRESSION
     Dosage: TWICE A DAY
     Dates: start: 201607, end: 201802
  4. MAGNESIUM OXIDE. [Concomitant]
     Active Substance: MAGNESIUM OXIDE
     Dosage: ONCE A DAY
  5. PRAVASTATIN. [Concomitant]
     Active Substance: PRAVASTATIN
     Dosage: EVENING
  6. DIVALPROEX SODIUM. [Suspect]
     Active Substance: DIVALPROEX SODIUM
     Indication: MOOD SWINGS
     Dosage: TWICE A DAY
     Dates: start: 20180103, end: 201802
  7. INSULIN GLARGINE [Concomitant]
     Active Substance: INSULIN GLARGINE
  8. TAMSULOSIN [Concomitant]
     Active Substance: TAMSULOSIN
     Dosage: EVENING
  9. TRAZODONE [Suspect]
     Active Substance: TRAZODONE HYDROCHLORIDE
     Dosage: EVENING ; AS NECESSARY
     Dates: start: 2015, end: 201802
  10. DIVALPROEX SODIUM. [Suspect]
     Active Substance: DIVALPROEX SODIUM
     Indication: MOOD SWINGS
     Dates: start: 201605, end: 20180103
  11. MEMANTINE. [Suspect]
     Active Substance: MEMANTINE
     Dates: end: 201802
  12. METFORMIN [Concomitant]
     Active Substance: METFORMIN HYDROCHLORIDE
     Dosage: ONCE/EVENING
  13. MELATONIN [Suspect]
     Active Substance: MELATONIN
     Dosage: EVENING
     Dates: end: 201802
  14. QUETIAPINE. [Suspect]
     Active Substance: QUETIAPINE
     Dosage: TWICE A DAY
     Dates: start: 2015, end: 201802

REACTIONS (3)
  - Serotonin syndrome [Recovered/Resolved]
  - Toxicity to various agents [Recovered/Resolved]
  - Drug interaction [Recovered/Resolved]

NARRATIVE: CASE EVENT DATE: 20180212
